FAERS Safety Report 11359122 (Version 2)
Quarter: 2015Q3

REPORT INFORMATION
  Report Type: Spontaneous
  Country: DE (occurrence: JP)
  Receive Date: 20150807
  Receipt Date: 20150902
  Transmission Date: 20151125
  Serious: Yes (Life-Threatening, Hospitalization)
  Sender: FDA-Public Use
  Company Number: JP-FRI-1000078722

PATIENT
  Age: 74 Year
  Sex: Female
  Weight: 71 kg

DRUGS (11)
  1. LENDORMIN [Concomitant]
     Active Substance: BROTIZOLAM
     Dates: start: 20150508
  2. CADUET [Concomitant]
     Active Substance: AMLODIPINE BESYLATE\ATORVASTATIN CALCIUM
     Dates: start: 20120420
  3. ALOSENN [Concomitant]
     Active Substance: SENNA LEAF
     Dates: start: 20150629
  4. SOLANAX [Concomitant]
     Active Substance: ALPRAZOLAM
     Dates: start: 20150508
  5. MEMANTINE. [Suspect]
     Active Substance: MEMANTINE
     Indication: DEMENTIA ALZHEIMER^S TYPE
     Dosage: 5 MG
     Route: 048
     Dates: start: 20150626, end: 20150702
  6. MEMANTINE. [Suspect]
     Active Substance: MEMANTINE
     Dosage: 10 MG
     Dates: start: 20150703
  7. DEPAKENE [Concomitant]
     Active Substance: VALPROIC ACID
     Dates: start: 20150610, end: 20150617
  8. MAGLAX [Concomitant]
     Active Substance: MAGNESIUM OXIDE
     Dates: start: 20150320, end: 20150628
  9. TRAZODONE [Concomitant]
     Active Substance: TRAZODONE HYDROCHLORIDE
     Dates: start: 20150521, end: 20150602
  10. BOFUTSUSHOSAN [Concomitant]
     Active Substance: HERBALS
     Dates: start: 20120605, end: 20140120
  11. EDIROL [Concomitant]
     Active Substance: ELDECALCITOL
     Dates: start: 20120310

REACTIONS (3)
  - Fracture [Not Recovered/Not Resolved]
  - Abnormal behaviour [Recovering/Resolving]
  - Pulmonary embolism [Recovering/Resolving]

NARRATIVE: CASE EVENT DATE: 20150715
